FAERS Safety Report 23611056 (Version 1)
Quarter: 2024Q1

REPORT INFORMATION
  Report Type: Spontaneous
  Country: CA (occurrence: CA)
  Receive Date: 20240308
  Receipt Date: 20240308
  Transmission Date: 20240409
  Serious: Yes (Life-Threatening)
  Sender: FDA-Public Use
  Company Number: CA-PFIZER INC-202400055124

PATIENT
  Age: 63 Year
  Sex: Female

DRUGS (4)
  1. FRAGMIN [Suspect]
     Active Substance: DALTEPARIN SODIUM
     Indication: Portal vein thrombosis
     Dosage: 9000 IU, 2X/DAY
     Route: 058
  2. ERELZI [Concomitant]
     Active Substance: ETANERCEPT-SZZS
     Route: 065
  3. FUROSEMIDE [Concomitant]
     Active Substance: FUROSEMIDE
     Route: 065
  4. PREDNISONE [Concomitant]
     Active Substance: PREDNISONE

REACTIONS (4)
  - Arterial haemorrhage [Recovering/Resolving]
  - Intra-abdominal haematoma [Recovering/Resolving]
  - Radioembolisation [Recovering/Resolving]
  - Transfusion [Recovering/Resolving]
